FAERS Safety Report 23265894 (Version 2)
Quarter: 2023Q4

REPORT INFORMATION
  Report Type: Report from Study
  Country: CA (occurrence: CA)
  Receive Date: 20231206
  Receipt Date: 20231227
  Transmission Date: 20240109
  Serious: Yes (Death, Other)
  Sender: FDA-Public Use
  Company Number: CA-ABBVIE-5526431

PATIENT
  Age: 79 Year
  Sex: Male

DRUGS (1)
  1. HUMIRA [Suspect]
     Active Substance: ADALIMUMAB
     Indication: Crohn^s disease
     Dosage: FORM STRENGTH:40 MILLIGRAM
     Route: 058

REACTIONS (7)
  - Death [Fatal]
  - Nephropathy [Unknown]
  - Crohn^s disease [Unknown]
  - Neoplasm malignant [Unknown]
  - Lung disorder [Unknown]
  - Chronic myelomonocytic leukaemia [Unknown]
  - Unevaluable event [Unknown]

NARRATIVE: CASE EVENT DATE: 20231012
